FAERS Safety Report 5903828-1 (Version None)
Quarter: 2008Q3

REPORT INFORMATION
  Report Type: 
  Country: None (occurrence: None)
  Receive Date: 20080930
  Receipt Date: 20080925
  Transmission Date: 20090109
  Serious: Yes (Hospitalization)
  Sender: FDA-Public Use
  Company Number: DE-AMGEN-US306537

PATIENT
  Sex: Female
  Weight: 58 kg

DRUGS (3)
  1. ENBREL [Suspect]
     Indication: JUVENILE ARTHRITIS
     Route: 058
     Dates: start: 20010101, end: 20080701
  2. INDOMETHACIN [Concomitant]
     Indication: JUVENILE ARTHRITIS
     Dosage: 25 - 50 MG
     Route: 048
  3. HUMIRA [Concomitant]
     Indication: JUVENILE ARTHRITIS
     Route: 058
     Dates: start: 20080804, end: 20080818

REACTIONS (5)
  - GLOMERULONEPHRITIS [None]
  - HAEMATURIA [None]
  - MITRAL VALVE INCOMPETENCE [None]
  - MYOCARDITIS [None]
  - PERICARDIAL EFFUSION [None]
